FAERS Safety Report 9183374 (Version 1)
Quarter: 2013Q1

REPORT INFORMATION
  Report Type: Spontaneous
  Country: US (occurrence: US)
  Receive Date: 20130322
  Receipt Date: 20130322
  Transmission Date: 20140127
  Serious: No
  Sender: FDA-Public Use
  Company Number: US-BRISTOL-MYERS SQUIBB COMPANY-17202466

PATIENT
  Sex: 0

DRUGS (1)
  1. ERBITUX [Suspect]
     Dosage: LOT#IMD197 ?EXP:MR2015 ?NDC#66733-0948-23?100 ML,LOT#10CC00062A ?EXP:AP2013  ?NDC66733-095823

REACTIONS (1)
  - Circumstance or information capable of leading to medication error [Unknown]
